FAERS Safety Report 7134892-2 (Version None)
Quarter: 2010Q4

REPORT INFORMATION
  Report Type: 
  Country: None (occurrence: None)
  Receive Date: 20101203
  Receipt Date: 20101130
  Transmission Date: 20110411
  Serious: Yes (Death, Hospitalization)
  Sender: FDA-Public Use
  Company Number: IL-BRISTOL-MYERS SQUIBB COMPANY-15059371

PATIENT
  Age: 71 Year
  Sex: Male

DRUGS (2)
  1. CISPLATIN [Suspect]
     Indication: GASTROOESOPHAGEAL CANCER
     Dosage: ON DAY 1 OF CYCLE CISPLATIN (80 MG/M2) AS 1 TO 4 HR INF ON THE 1ST DAY OF EACH 3-WEEK CYCLE.
     Route: 042
     Dates: start: 20100316
  2. XELODA [Suspect]
     Indication: GASTROOESOPHAGEAL CANCER
     Dosage: ON DAY 1-15;RECENT  FIRST INF ON 28MAR2010;TEMPORARILT DISCONTINUED ON 28MAR2010
     Route: 048
     Dates: start: 20100316, end: 20100328

REACTIONS (4)
  - DEATH [None]
  - DIARRHOEA [None]
  - LEUKOPENIA [None]
  - NEUTROPENIA [None]
